FAERS Safety Report 25525626 (Version 3)
Quarter: 2025Q3

REPORT INFORMATION
  Report Type: Spontaneous
  Country: US (occurrence: US)
  Receive Date: 20250707
  Receipt Date: 20250820
  Transmission Date: 20251021
  Serious: Yes (Other)
  Sender: PFIZER
  Company Number: US-PFIZER INC-202500133725

PATIENT
  Age: 49 Year
  Sex: Female

DRUGS (1)
  1. VELSIPITY [Suspect]
     Active Substance: ETRASIMOD ARGININE

REACTIONS (4)
  - Nephrolithiasis [Unknown]
  - Rectal haemorrhage [Not Recovered/Not Resolved]
  - Constipation [Unknown]
  - Condition aggravated [Unknown]
